FAERS Safety Report 7553542-4 (Version None)
Quarter: 2011Q2

REPORT INFORMATION
  Report Type: 
  Country: None (occurrence: None)
  Receive Date: 20110614
  Receipt Date: 20110614
  Transmission Date: 20111010
  Serious: Yes (Other)
  Sender: FDA-Public Use
  Company Number: None

PATIENT
  Sex: Female
  Weight: 54.4316 kg

DRUGS (1)
  1. AVELOX [Suspect]
     Indication: STAPHYLOCOCCAL INFECTION
     Dosage: ONE TABLET DAILY PO
     Route: 048
     Dates: start: 20110609, end: 20110609

REACTIONS (7)
  - THINKING ABNORMAL [None]
  - TREMOR [None]
  - PALPITATIONS [None]
  - ANXIETY [None]
  - DISSOCIATION [None]
  - MUSCULAR WEAKNESS [None]
  - IMPAIRED WORK ABILITY [None]
